FAERS Safety Report 20010018 (Version 1)
Quarter: 2021Q4

REPORT INFORMATION
  Report Type: Spontaneous
  Country: US (occurrence: US)
  Receive Date: 20211028
  Receipt Date: 20211028
  Transmission Date: 20220303
  Serious: Yes (Hospitalization)
  Sender: FDA-Public Use
  Company Number: None

PATIENT
  Age: 49 Year
  Sex: Female

DRUGS (1)
  1. PIPERACILLIN AND TAZOBACTAM [Suspect]
     Active Substance: PIPERACILLIN SODIUM\TAZOBACTAM SODIUM
     Indication: Osteomyelitis
     Dates: start: 20210924, end: 20211015

REACTIONS (5)
  - Complication associated with device [None]
  - Device occlusion [None]
  - Palpitations [None]
  - Back pain [None]
  - Product deposit [None]

NARRATIVE: CASE EVENT DATE: 20211015
